FAERS Safety Report 5602954-4 (Version None)
Quarter: 2008Q1

REPORT INFORMATION
  Report Type: 
  Country: None (occurrence: None)
  Receive Date: 20080125
  Receipt Date: 20080124
  Transmission Date: 20080703
  Serious: Yes (Death, Other)
  Sender: FDA-Public Use
  Company Number: BR-ABBOTT-07P-020-0420697-00

PATIENT
  Age: 50 Year
  Sex: Female
  Weight: 65 kg

DRUGS (8)
  1. HUMIRA [Suspect]
     Indication: RHEUMATOID ARTHRITIS
     Route: 058
     Dates: start: 20070401, end: 20071008
  2. METHOTREXATE [Suspect]
     Indication: RHEUMATOID ARTHRITIS
     Dates: start: 20060101, end: 20071004
  3. METHOTREXATE [Suspect]
     Dates: end: 20010101
  4. LEFLUNOMIDE [Concomitant]
     Indication: RHEUMATOID ARTHRITIS
     Dates: start: 20010101
  5. PREDNISONE TAB [Concomitant]
     Indication: RHEUMATOID ARTHRITIS
  6. UNKNOWN DIURETIC [Concomitant]
     Indication: HYPERTENSION
  7. CAPTOPRIL [Concomitant]
     Indication: HYPERTENSION
  8. METFORMIN HCL [Concomitant]
     Indication: DIABETES MELLITUS

REACTIONS (9)
  - BACK PAIN [None]
  - CARDIAC FAILURE [None]
  - CHEST DISCOMFORT [None]
  - DIARRHOEA [None]
  - PAIN [None]
  - PLEURAL EFFUSION [None]
  - PNEUMONIA [None]
  - RESPIRATORY FAILURE [None]
  - RHINITIS [None]
